FAERS Safety Report 4876466-X (Version None)
Quarter: 2005Q4

REPORT INFORMATION
  Report Type: 
  Country: None (occurrence: None)
  Receive Date: 20051206
  Receipt Date: 20051020
  Transmission Date: 20060501
  Serious: No
  Sender: FDA-Public Use
  Company Number: USA0510111406

PATIENT
  Age: 64 Year
  Sex: Female

DRUGS (4)
  1. CYMBALTA [Suspect]
     Dosage: 60 MG
     Dates: start: 20040101
  2. FLUOXETINE [Concomitant]
  3. ESTROGENS CONJUGATED [Concomitant]
  4. SYNTHROID [Concomitant]

REACTIONS (2)
  - NIGHT SWEATS [None]
  - THINKING ABNORMAL [None]
